FAERS Safety Report 18583720 (Version 1)
Quarter: 2020Q4

REPORT INFORMATION
  Report Type: Report from Study
  Country: US (occurrence: US)
  Receive Date: 20201207
  Receipt Date: 20201207
  Transmission Date: 20210114
  Serious: Yes (Hospitalization)
  Sender: FDA-Public Use
  Company Number: US-MTPC-MTDA2020-0071939

PATIENT
  Age: 69 Year
  Sex: Female

DRUGS (4)
  1. RILUZOLE. [Concomitant]
     Active Substance: RILUZOLE
     Indication: PRODUCT USED FOR UNKNOWN INDICATION
     Dosage: UNK
     Route: 065
  2. EDARAVONE INJ [Suspect]
     Active Substance: EDARAVONE
     Indication: AMYOTROPHIC LATERAL SCLEROSIS
     Dosage: 60 MILLIGRAM OVER 60 MINS QD 14 DAYS FOLLOWED BY A 14-DAY DRUG-FREE PERIOD
     Route: 042
     Dates: start: 20200929
  3. EDARAVONE INJ [Suspect]
     Active Substance: EDARAVONE
     Dosage: 60 MILLIGRAM OVER 60 MINS QD 10 DAYS OUT OF 14 DAYS FOLLOWED BY A 14-DAY DRUG-FREE PERIOD
     Route: 042
     Dates: start: 20201124, end: 20201124
  4. SINGULAIR [Concomitant]
     Active Substance: MONTELUKAST SODIUM
     Indication: PRODUCT USED FOR UNKNOWN INDICATION
     Dosage: UNK
     Route: 065

REACTIONS (3)
  - Body temperature increased [Unknown]
  - Chills [Unknown]
  - Tremor [Unknown]

NARRATIVE: CASE EVENT DATE: 20201101
